FAERS Safety Report 6787695-2 (Version None)
Quarter: 2010Q2

REPORT INFORMATION
  Report Type: 
  Country: None (occurrence: None)
  Receive Date: 20100623
  Receipt Date: 20070827
  Transmission Date: 20101027
  Serious: Yes (Other)
  Sender: FDA-Public Use
  Company Number: US-PFIZER INC-2007057125

PATIENT
  Age: 17 Year
  Sex: Female
  Weight: 68 kg

DRUGS (2)
  1. DEPO-PROVERA SUSPENSION/INJ [Suspect]
     Indication: CONTRACEPTION
     Dosage: 1ST INJECTION EVERY 3 MONTHS
     Route: 030
     Dates: start: 20070319, end: 20070319
  2. DEPO-PROVERA SUSPENSION/INJ [Suspect]
     Dosage: 2ND AND MOST RECENT INJECTION
     Route: 030
     Dates: start: 20070611, end: 20070611

REACTIONS (2)
  - DRUG INEFFECTIVE [None]
  - UNINTENDED PREGNANCY [None]
